FAERS Safety Report 24042093 (Version 1)
Quarter: 2024Q3

REPORT INFORMATION
  Report Type: Spontaneous
  Country: ES (occurrence: ES)
  Receive Date: 20240702
  Receipt Date: 20240702
  Transmission Date: 20241016
  Serious: Yes (Death)
  Sender: RIGEL PHARMACEUTICALS
  Company Number: ES-RIGEL Pharmaceuticals, INC-20240600074

PATIENT
  Age: 82 Year
  Sex: Female

DRUGS (1)
  1. TAVALISSE [Suspect]
     Active Substance: FOSTAMATINIB
     Indication: Immune thrombocytopenia
     Dosage: UNK

REACTIONS (1)
  - Urosepsis [Fatal]
